FAERS Safety Report 5109263-0 (Version None)
Quarter: 2006Q3

REPORT INFORMATION
  Report Type: 
  Country: None (occurrence: None)
  Receive Date: 20060918
  Receipt Date: 20060906
  Transmission Date: 20061208
  Serious: No
  Sender: FDA-Public Use
  Company Number: 06H-163-0310013-00

PATIENT
  Age: 28 Year
  Sex: Male

DRUGS (6)
  1. VANCOMYCIN HYDROCHLORIDE [Suspect]
     Indication: ANTI-INFECTIVE THERAPY
     Dosage: TWICE, INTRAVENOUS
     Route: 042
  2. CEFEPIME [Suspect]
     Indication: ANTI-INFECTIVE THERAPY
  3. DOXYCYCLINE [Concomitant]
  4. LEVOFLOXACIN [Concomitant]
  5. METRONIDAZOLE [Concomitant]
  6. IMIPENEM (IMIPENEM) [Concomitant]

REACTIONS (3)
  - APLASIA [None]
  - LEUKOPENIA [None]
  - NEUTROPENIA [None]
